FAERS Safety Report 7791600-X (Version None)
Quarter: 2011Q4

REPORT INFORMATION
  Report Type: 
  Country: None (occurrence: None)
  Receive Date: 20111003
  Receipt Date: 20110922
  Transmission Date: 20120403
  Serious: No
  Sender: FDA-Public Use
  Company Number: FR-ASTELLAS-2011EU006215

PATIENT
  Sex: Male

DRUGS (1)
  1. PROGRAF [Suspect]
     Dosage: UNK
     Route: 065

REACTIONS (1)
  - FURUNCLE [None]
